FAERS Safety Report 21842151 (Version 2)
Quarter: 2024Q4

REPORT INFORMATION
  Report Type: Spontaneous
  Country: AU (occurrence: AU)
  Receive Date: 20230110
  Receipt Date: 20241227
  Transmission Date: 20250114
  Serious: Yes (Death, Other)
  Sender: TORRENT PHARMA INC.
  Company Number: AU-TORRENT-00000465

PATIENT
  Age: 81 Year
  Sex: Male

DRUGS (1)
  1. OLANZAPINE [Suspect]
     Active Substance: OLANZAPINE
     Indication: Schizophrenia
     Dosage: 2.5 MILLIGRAM
     Route: 065
     Dates: start: 2012

REACTIONS (2)
  - Myocardial infarction [Fatal]
  - Overweight [Unknown]
